FAERS Safety Report 11433542 (Version 1)
Quarter: 2015Q3

REPORT INFORMATION
  Report Type: Spontaneous
  Country: US (occurrence: US)
  Receive Date: 20150831
  Receipt Date: 20150831
  Transmission Date: 20151125
  Serious: Yes (Other)
  Sender: FDA-Public Use
  Company Number: US-UCBSA-2015027388

PATIENT
  Sex: Female

DRUGS (1)
  1. KEPPRA [Suspect]
     Active Substance: LEVETIRACETAM
     Indication: PRODUCT USED FOR UNKNOWN INDICATION
     Dosage: UNK

REACTIONS (8)
  - Adverse drug reaction [Unknown]
  - Fear [Unknown]
  - Mood swings [Unknown]
  - Depression [Unknown]
  - Suicidal ideation [Unknown]
  - Physical abuse [Unknown]
  - Migraine [Unknown]
  - Memory impairment [Unknown]
